FAERS Safety Report 4398664-4 (Version None)
Quarter: 2004Q3

REPORT INFORMATION
  Report Type: 
  Country: None (occurrence: None)
  Receive Date: 20040712
  Receipt Date: 20040629
  Transmission Date: 20050211
  Serious: Yes (Hospitalization)
  Sender: FDA-Public Use
  Company Number: 2004AP03385

PATIENT
  Age: 68 Year
  Sex: Male

DRUGS (6)
  1. OMEPRAZOLE [Suspect]
     Indication: HAEMORRHAGE
     Dosage: 10 MG DAILY PO
     Route: 048
     Dates: start: 20040623, end: 20040628
  2. BERIZYM [Concomitant]
  3. ENTERONON R [Concomitant]
  4. PHYSIO 35 [Concomitant]
  5. MIDOCIN [Concomitant]
  6. VITAMEDIN [Concomitant]

REACTIONS (2)
  - BLOOD ALKALINE PHOSPHATASE INCREASED [None]
  - BLOOD URIC ACID INCREASED [None]
